FAERS Safety Report 7730251-X (Version None)
Quarter: 2011Q3

REPORT INFORMATION
  Report Type: 
  Country: None (occurrence: None)
  Receive Date: 20110906
  Receipt Date: 20110902
  Transmission Date: 20111222
  Serious: Yes (Death, Hospitalization, Other)
  Sender: FDA-Public Use
  Company Number: PHHY2011BR44207

PATIENT
  Sex: Male

DRUGS (1)
  1. EXELON [Suspect]
     Dosage: 18MG/10CM2, 1 PATCH PER DAY
     Route: 062

REACTIONS (7)
  - RIB FRACTURE [None]
  - WHEEZING [None]
  - FALL [None]
  - DEATH [None]
  - DYSPNOEA [None]
  - CARDIAC ARREST [None]
  - PNEUMONIA [None]
